FAERS Safety Report 9008626 (Version 1)
Quarter: 2013Q1

REPORT INFORMATION
  Report Type: Spontaneous
  Country: US (occurrence: US)
  Receive Date: 20130111
  Receipt Date: 20130111
  Transmission Date: 20140127
  Serious: Yes (Other)
  Sender: FDA-Public Use
  Company Number: US-ELI_LILLY_AND_COMPANY-US201301001093

PATIENT
  Sex: Female

DRUGS (3)
  1. CYMBALTA [Suspect]
     Indication: NEURALGIA
     Dosage: 60 MG, UNK
  2. CYMBALTA [Suspect]
     Dosage: 30 MG, UNK
  3. CYMBALTA [Suspect]
     Dosage: 60 MG, UNK

REACTIONS (5)
  - Suicidal ideation [Unknown]
  - Anger [Unknown]
  - Depression [Unknown]
  - Off label use [Unknown]
  - Drug withdrawal syndrome [Unknown]
